FAERS Safety Report 4277759-X (Version None)
Quarter: 2004Q1

REPORT INFORMATION
  Report Type: 
  Country: None (occurrence: None)
  Receive Date: 20040121
  Receipt Date: 20040109
  Transmission Date: 20041129
  Serious: Yes (Hospitalization)
  Sender: FDA-Public Use
  Company Number: 2004002257

PATIENT
  Age: 74 Year
  Sex: Male

DRUGS (8)
  1. LIPITOR [Suspect]
     Indication: ILL-DEFINED DISORDER
     Dosage: ORAL
     Route: 048
  2. ALLOPURINOL [Suspect]
     Indication: ILL-DEFINED DISORDER
     Dosage: ORAL
     Route: 048
  3. DOXAZOSIN MESYLATE [Concomitant]
  4. FUROSEMIDE [Concomitant]
  5. NIFEDIPINE [Concomitant]
  6. FAMOTIDINE [Concomitant]
  7. DILTIAZEM HYDROCHLORIDE [Concomitant]
  8. GLICLAZIDE (GLICLAZIDE) [Concomitant]

REACTIONS (2)
  - HYPERSENSITIVITY [None]
  - LIVER DISORDER [None]
